FAERS Safety Report 13877576 (Version 2)
Quarter: 2017Q3

REPORT INFORMATION
  Report Type: Report from Study
  Country: CO (occurrence: CO)
  Receive Date: 20170817
  Receipt Date: 20170908
  Transmission Date: 20171127
  Serious: Yes (Death)
  Sender: FDA-Public Use
  Company Number: CO-SA-2017SA149863

PATIENT
  Age: 20 Year
  Sex: Female

DRUGS (1)
  1. CLOLAR [Suspect]
     Active Substance: CLOFARABINE
     Indication: ACUTE LYMPHOCYTIC LEUKAEMIA
     Route: 042
     Dates: start: 20170719, end: 20170723

REACTIONS (3)
  - Renal failure [Fatal]
  - Cardio-respiratory arrest [Fatal]
  - Infection [Fatal]

NARRATIVE: CASE EVENT DATE: 2017
